FAERS Safety Report 25487270 (Version 1)
Quarter: 2025Q2

REPORT INFORMATION
  Report Type: Spontaneous
  Country: US (occurrence: US)
  Receive Date: 20250627
  Receipt Date: 20250627
  Transmission Date: 20250717
  Serious: No
  Sender: DECIPHERA PHARMACEUTICALS
  Company Number: US-DECIPHERA PHARMACEUTICALS LLC-2025US000671

PATIENT
  Sex: Female

DRUGS (3)
  1. QINLOCK [Suspect]
     Active Substance: RIPRETINIB
     Indication: Product used for unknown indication
  2. QINLOCK [Suspect]
     Active Substance: RIPRETINIB
  3. QINLOCK [Suspect]
     Active Substance: RIPRETINIB

REACTIONS (2)
  - Pain in extremity [Recovered/Resolved]
  - Disease progression [Unknown]
